FAERS Safety Report 7261797-9 (Version None)
Quarter: 2011Q1

REPORT INFORMATION
  Report Type: 
  Country: None (occurrence: None)
  Receive Date: 20110130
  Receipt Date: 20101130
  Transmission Date: 20110831
  Serious: No
  Sender: FDA-Public Use
  Company Number: US-ABBOTT-10P-163-0688679-00

PATIENT
  Age: 69 Year
  Sex: Female

DRUGS (3)
  1. BENICAR HCT [Concomitant]
     Indication: HYPERTENSION
     Dosage: 1 DOSAGE FORM-20/12.5MG DAILY
  2. MTX [Concomitant]
     Indication: RHEUMATOID ARTHRITIS
  3. HUMIRA [Suspect]
     Indication: RHEUMATOID ARTHRITIS
     Dates: start: 20100901

REACTIONS (6)
  - BACK PAIN [None]
  - RASH [None]
  - MYALGIA [None]
  - NECK PAIN [None]
  - URINARY TRACT INFECTION [None]
  - JOINT SWELLING [None]
